FAERS Safety Report 4979929-1 (Version None)
Quarter: 2006Q2

REPORT INFORMATION
  Report Type: 
  Country: None (occurrence: None)
  Receive Date: 20060421
  Receipt Date: 20060317
  Transmission Date: 20061013
  Serious: Yes (Death, Hospitalization, Other)
  Sender: FDA-Public Use
  Company Number: US-MERCK-0603USA03010

PATIENT
  Age: 85 Year
  Sex: Male
  Weight: 76 kg

DRUGS (1)
  1. VIOXX [Suspect]
     Indication: ARTHRITIS
     Route: 048
     Dates: start: 20000127, end: 20000425

REACTIONS (5)
  - ANGINA UNSTABLE [None]
  - ARTHROPATHY [None]
  - CHEST PAIN [None]
  - DEATH [None]
  - MYOCARDIAL INFARCTION [None]
